FAERS Safety Report 10400078 (Version 2)
Quarter: 2015Q3

REPORT INFORMATION
  Report Type: Spontaneous
  Country: US (occurrence: US)
  Receive Date: 20140821
  Receipt Date: 20150708
  Transmission Date: 20151125
  Serious: Yes (Life-Threatening, Hospitalization, Other)
  Sender: FDA-Public Use
  Company Number: US-BAYER-2014-124707

PATIENT
  Age: 32 Year
  Sex: Female
  Weight: 112 kg

DRUGS (8)
  1. HYDROXYZINE HCL [Concomitant]
     Active Substance: HYDROXYZINE HYDROCHLORIDE
     Dosage: 10 MG, UNK
     Dates: start: 20120514
  2. YASMIN [Suspect]
     Active Substance: DROSPIRENONE\ETHINYL ESTRADIOL
     Indication: CONTRACEPTION
     Dosage: UNK
     Dates: start: 201008, end: 20120828
  3. OCELLA [Suspect]
     Active Substance: DROSPIRENONE\ETHINYL ESTRADIOL
     Indication: CONTRACEPTION
     Dosage: UNK
     Dates: start: 201008, end: 20120829
  4. YASMIN [Suspect]
     Active Substance: DROSPIRENONE\ETHINYL ESTRADIOL
     Indication: CONTRACEPTION
     Dosage: UNK
     Dates: start: 20090126, end: 201008
  5. ASCORBIC ACID. [Concomitant]
     Active Substance: ASCORBIC ACID
  6. YAZ [Suspect]
     Active Substance: DROSPIRENONE\ETHINYL ESTRADIOL
     Indication: CONTRACEPTION
     Dosage: UNK
     Dates: start: 201008, end: 20120828
  7. TRIAMCINOLONE [Concomitant]
     Active Substance: TRIAMCINOLONE
     Dosage: 0.1 %, UNK
     Dates: start: 20120515
  8. DOXEPIN [Concomitant]
     Active Substance: DOXEPIN
     Dosage: 10 MG, UNK
     Dates: start: 20120514

REACTIONS (9)
  - Cerebrovascular accident [None]
  - Injury [None]
  - Gait disturbance [None]
  - Deep vein thrombosis [None]
  - Muscle tightness [None]
  - Joint injury [None]
  - Pain [None]
  - Peripheral swelling [None]
  - Gallbladder disorder [None]

NARRATIVE: CASE EVENT DATE: 201208
